FAERS Safety Report 7593624-4 (Version None)
Quarter: 2011Q3

REPORT INFORMATION
  Report Type: 
  Country: None (occurrence: None)
  Receive Date: 20110706
  Receipt Date: 20110627
  Transmission Date: 20111222
  Serious: Yes (Hospitalization, Other)
  Sender: FDA-Public Use
  Company Number: JP-CEPHALON-2011000671

PATIENT
  Sex: Female
  Weight: 51 kg

DRUGS (17)
  1. GRANISETRON HCL [Concomitant]
     Dates: start: 20101216, end: 20101219
  2. TEPRENONE [Concomitant]
     Dates: start: 20110125, end: 20110130
  3. LENOGRASTIM [Concomitant]
     Dates: start: 20110208, end: 20110216
  4. BENDAMUSTINE HCL [Suspect]
     Indication: B-CELL SMALL LYMPHOCYTIC LYMPHOMA
     Route: 042
     Dates: start: 20101216, end: 20101217
  5. DEXAMETHASONE [Concomitant]
     Dates: start: 20101216, end: 20101219
  6. DIPHENHYDRAMINE HCL [Concomitant]
     Dates: start: 20101216, end: 20101217
  7. SODIUM BICARBONATE [Concomitant]
     Dates: start: 20101216, end: 20101217
  8. MOXIFLOXACIN HYDROCHLORIDE [Concomitant]
     Dates: start: 20110211, end: 20110221
  9. SULFAMETHOXAZOLE AND TRIMETHOPRIM [Concomitant]
  10. RABEPRAZOLE SODIUM [Concomitant]
  11. FAMOTIDINE [Concomitant]
     Dates: start: 20110324, end: 20110328
  12. ACETAMINOPHEN [Concomitant]
     Dates: start: 20101216, end: 20101217
  13. ACYCLOVIR [Concomitant]
  14. BENDAMUSTINE HCL [Suspect]
     Route: 042
     Dates: start: 20110201, end: 20110202
  15. BIFIDOBACTERIUM ANIMALIS [Concomitant]
  16. SULFONAMIDES [Concomitant]
     Dates: start: 20110120, end: 20110206
  17. MOSAPRIDE CITRATE [Concomitant]
     Dates: start: 20110121, end: 20110124

REACTIONS (11)
  - CEREBELLAR HAEMORRHAGE [None]
  - ANAEMIA [None]
  - VOMITING [None]
  - PLATELET COUNT DECREASED [None]
  - NAUSEA [None]
  - LYMPHOCYTE COUNT DECREASED [None]
  - BLOOD LACTATE DEHYDROGENASE INCREASED [None]
  - CYTOMEGALOVIRUS VIRAEMIA [None]
  - NEUTROPHIL COUNT DECREASED [None]
  - FEBRILE NEUTROPENIA [None]
  - PYREXIA [None]
